FAERS Safety Report 16203059 (Version 6)
Quarter: 2019Q3

REPORT INFORMATION
  Report Type: Report from Study
  Country: US (occurrence: US)
  Receive Date: 20190416
  Receipt Date: 20190923
  Transmission Date: 20191004
  Serious: Yes (Hospitalization, Other)
  Sender: FDA-Public Use
  Company Number: US-TESARO-2019-TSO01342-US

PATIENT
  Age: 77 Year
  Sex: Female
  Weight: 82 kg

DRUGS (3)
  1. NIRAPARIB [Suspect]
     Active Substance: NIRAPARIB
     Dosage: 200 MG, QPM WITH FOOD
     Route: 048
     Dates: start: 20190314
  2. NIRAPARIB [Suspect]
     Active Substance: NIRAPARIB
     Dosage: 300 MG, QD
     Route: 048
  3. TURMERIC                           /01079601/ [Concomitant]
     Active Substance: HERBALS\TURMERIC
     Dosage: UNK

REACTIONS (21)
  - Tongue discolouration [Not Recovered/Not Resolved]
  - Haematuria [Unknown]
  - Decreased appetite [Not Recovered/Not Resolved]
  - Asthenia [Unknown]
  - Insomnia [Not Recovered/Not Resolved]
  - Dysuria [Unknown]
  - Blood pressure increased [Unknown]
  - Headache [Unknown]
  - Neuropathy peripheral [Not Recovered/Not Resolved]
  - Pain [Not Recovered/Not Resolved]
  - White blood cell count decreased [Unknown]
  - Balance disorder [Unknown]
  - Drug intolerance [Unknown]
  - Weight decreased [Unknown]
  - Constipation [Not Recovered/Not Resolved]
  - Stent placement [Unknown]
  - Pelvic mass [Unknown]
  - Eating disorder [Unknown]
  - Eye irritation [Unknown]
  - Nausea [Recovered/Resolved]
  - Fatigue [Not Recovered/Not Resolved]

NARRATIVE: CASE EVENT DATE: 201903
